FAERS Safety Report 21301430 (Version 3)
Quarter: 2022Q4

REPORT INFORMATION
  Report Type: Spontaneous
  Country: JP (occurrence: JP)
  Receive Date: 20220907
  Receipt Date: 20221031
  Transmission Date: 20230112
  Serious: Yes (Hospitalization, Other)
  Sender: FDA-Public Use
  Company Number: JP-NOVARTISPH-NVSJ2022JP096832

PATIENT
  Age: 98 Year
  Sex: Female

DRUGS (22)
  1. ENTRESTO [Suspect]
     Active Substance: SACUBITRIL\VALSARTAN
     Indication: Cardiac failure congestive
     Dosage: 50 MG, QD (IN THE MORNING)
     Route: 048
  2. ASPIRIN [Concomitant]
     Active Substance: ASPIRIN
     Indication: Product used for unknown indication
     Dosage: 100 MG, QD
     Route: 048
  3. NESINA [Concomitant]
     Active Substance: ALOGLIPTIN BENZOATE
     Indication: Product used for unknown indication
     Dosage: 6.25 MG
     Route: 048
  4. NESINA [Concomitant]
     Active Substance: ALOGLIPTIN BENZOATE
     Dosage: 12.5 MG
     Route: 048
     Dates: start: 20220903
  5. NESINA [Concomitant]
     Active Substance: ALOGLIPTIN BENZOATE
     Dosage: 25 MG
     Route: 048
     Dates: start: 20220928
  6. GLICLAZIDE [Concomitant]
     Active Substance: GLICLAZIDE
     Indication: Product used for unknown indication
     Dosage: 20 MG
     Route: 048
  7. GLICLAZIDE [Concomitant]
     Active Substance: GLICLAZIDE
     Dosage: 40 MG
     Route: 048
     Dates: start: 20220918
  8. FUROSEMIDE [Concomitant]
     Active Substance: FUROSEMIDE
     Indication: Product used for unknown indication
     Dosage: 20 MG
     Route: 048
  9. ALFACALCIDOL [Concomitant]
     Active Substance: ALFACALCIDOL
     Indication: Product used for unknown indication
     Dosage: 1 UG
     Route: 048
     Dates: end: 20220907
  10. RABEPRAZOLE SODIUM [Concomitant]
     Active Substance: RABEPRAZOLE SODIUM
     Indication: Product used for unknown indication
     Dosage: 10 MG, QD
     Route: 048
  11. ISOSORBIDE DINITRATE [Concomitant]
     Active Substance: ISOSORBIDE DINITRATE
     Indication: Product used for unknown indication
     Dosage: 40 MG
     Route: 048
  12. POTASSIUM ASPARTATE [Concomitant]
     Active Substance: POTASSIUM ASPARTATE
     Indication: Product used for unknown indication
     Dosage: 900 MG
     Route: 048
  13. POTASSIUM ASPARTATE [Concomitant]
     Active Substance: POTASSIUM ASPARTATE
     Dosage: 1800 MG
     Route: 048
     Dates: start: 20220819
  14. DOXAZOSIN MESYLATE [Concomitant]
     Active Substance: DOXAZOSIN MESYLATE
     Indication: Product used for unknown indication
     Dosage: 0.5 MG
     Route: 048
     Dates: end: 20220906
  15. CALONAL [Concomitant]
     Active Substance: ACETAMINOPHEN
     Indication: Product used for unknown indication
     Dosage: 400 MG
     Route: 048
  16. BELSOMRA [Concomitant]
     Active Substance: SUVOREXANT
     Indication: Product used for unknown indication
     Dosage: 15 MG
     Route: 048
  17. MAGNESIUM OXIDE [Concomitant]
     Active Substance: MAGNESIUM OXIDE
     Indication: Product used for unknown indication
     Dosage: 990 MG
     Route: 048
  18. ETIZOLAM [Concomitant]
     Active Substance: ETIZOLAM
     Indication: Chest discomfort
     Dosage: 0.25 MG
     Route: 048
  19. ETIZOLAM [Concomitant]
     Active Substance: ETIZOLAM
     Dosage: 1 DOSAGE FORM, PRN
     Route: 048
     Dates: start: 20220818
  20. ETIZOLAM [Concomitant]
     Active Substance: ETIZOLAM
     Dosage: 1 DOSAGE FORM, PRN
     Route: 048
     Dates: start: 20220828
  21. SENNOSIDES [Concomitant]
     Active Substance: SENNOSIDES
     Indication: Constipation
     Dosage: 24 MG, PRN
     Route: 048
  22. SODIUM PICOSULFATE [Concomitant]
     Active Substance: SODIUM PICOSULFATE
     Indication: Constipation
     Dosage: 15 DRP (1 ML), PRN
     Route: 048

REACTIONS (4)
  - Pemphigoid [Recovering/Resolving]
  - Cutaneous symptom [Recovering/Resolving]
  - Chest discomfort [Unknown]
  - Hyperglycaemia [Unknown]

NARRATIVE: CASE EVENT DATE: 20220815
